FAERS Safety Report 6250068-5 (Version None)
Quarter: 2009Q2

REPORT INFORMATION
  Report Type: 
  Country: None (occurrence: None)
  Receive Date: 20090629
  Receipt Date: 20090616
  Transmission Date: 20091009
  Serious: Yes (Hospitalization)
  Sender: FDA-Public Use
  Company Number: ES-AMGEN-US352459

PATIENT
  Age: 10 Year
  Sex: Female
  Weight: 68 kg

DRUGS (1)
  1. ENBREL [Suspect]
     Indication: PYODERMA GANGRENOSUM
     Route: 058
     Dates: start: 20090521, end: 20090601

REACTIONS (2)
  - CONDITION AGGRAVATED [None]
  - PYODERMA GANGRENOSUM [None]
